FAERS Safety Report 5046561-3 (Version None)
Quarter: 2006Q3

REPORT INFORMATION
  Report Type: 
  Country: None (occurrence: None)
  Receive Date: 20060706
  Receipt Date: 20060706
  Transmission Date: 20061208
  Serious: Yes (Life-Threatening)
  Sender: FDA-Public Use
  Company Number: None

PATIENT
  Age: 62 Year
  Sex: Male
  Weight: 87 kg

DRUGS (2)
  1. WINRHO [Suspect]
     Indication: IDIOPATHIC THROMBOCYTOPENIC PURPURA
     Dosage: 4300 MCG IV ONE TIME
     Route: 042
     Dates: start: 20060615
  2. WINRHO [Suspect]
     Indication: PLATELET COUNT DECREASED
     Dosage: 4300 MCG IV ONE TIME
     Route: 042
     Dates: start: 20060615

REACTIONS (3)
  - BACK PAIN [None]
  - DYSPNOEA [None]
  - HYPERHIDROSIS [None]
